FAERS Safety Report 17710412 (Version 1)
Quarter: 2020Q2

REPORT INFORMATION
  Report Type: Spontaneous
  Country: US (occurrence: US)
  Receive Date: 20200427
  Receipt Date: 20200427
  Transmission Date: 20200714
  Serious: No
  Sender: FDA-Public Use
  Company Number: US-TEVA-2020-US-1226250

PATIENT
  Age: 91 Year
  Sex: Female

DRUGS (2)
  1. BUDESONIDE. [Suspect]
     Active Substance: BUDESONIDE
     Dosage: SOLUTION
     Route: 055
  2. BROVANA [Interacting]
     Active Substance: ARFORMOTEROL TARTRATE
     Route: 065

REACTIONS (4)
  - Tongue discomfort [Not Recovered/Not Resolved]
  - Swollen tongue [Not Recovered/Not Resolved]
  - Drug interaction [Not Recovered/Not Resolved]
  - Glossitis [Not Recovered/Not Resolved]
